FAERS Safety Report 7452297-1 (Version None)
Quarter: 2011Q2

REPORT INFORMATION
  Report Type: 
  Country: None (occurrence: None)
  Receive Date: 20110502
  Receipt Date: 20110418
  Transmission Date: 20111010
  Serious: Yes (Hospitalization)
  Sender: FDA-Public Use
  Company Number: AU-JNJFOC-20110407455

PATIENT
  Age: 6 Decade
  Sex: Female

DRUGS (2)
  1. REMICADE [Suspect]
     Route: 042
  2. REMICADE [Suspect]
     Indication: CROHN'S DISEASE
     Route: 042

REACTIONS (9)
  - HYPERHIDROSIS [None]
  - NAUSEA [None]
  - CHEST PAIN [None]
  - DIARRHOEA [None]
  - COLD SWEAT [None]
  - INFUSION RELATED REACTION [None]
  - VOMITING [None]
  - VERTIGO [None]
  - INCORRECT DRUG ADMINISTRATION RATE [None]
